FAERS Safety Report 15249071 (Version 1)
Quarter: 2018Q3

REPORT INFORMATION
  Report Type: Spontaneous
  Country: FR (occurrence: FR)
  Receive Date: 20180807
  Receipt Date: 20180807
  Transmission Date: 20181010
  Serious: Yes (Hospitalization)
  Sender: FDA-Public Use
  Company Number: FR-CANTON LABORATORIES, LLC-2053370

PATIENT
  Age: 78 Year
  Sex: Male
  Weight: 90 kg

DRUGS (11)
  1. PREVISCAN [Concomitant]
     Route: 048
     Dates: end: 20180515
  2. DIAMICRON [Concomitant]
     Active Substance: GLICLAZIDE
     Route: 048
  3. NAPROSYN [Suspect]
     Active Substance: NAPROXEN
     Indication: SCIATICA
     Route: 048
     Dates: start: 20180507, end: 20180515
  4. CARDENSIEL [Concomitant]
     Active Substance: BISOPROLOL FUMARATE
     Route: 048
  5. FUROSEMIDE. [Concomitant]
     Active Substance: FUROSEMIDE
     Route: 048
     Dates: end: 20180530
  6. OMEPRAZOLE. [Concomitant]
     Active Substance: OMEPRAZOLE
     Route: 048
     Dates: start: 20180515
  7. KETUM [Suspect]
     Active Substance: KETOPROFEN
     Route: 003
     Dates: end: 20180515
  8. METFORMIN HYDROCHLORIDE. [Concomitant]
     Active Substance: METFORMIN HYDROCHLORIDE
     Route: 048
     Dates: end: 20180515
  9. KENZEN [Suspect]
     Active Substance: CANDESARTAN
     Route: 048
     Dates: end: 20180515
  10. KLIPAL CODEINE [Concomitant]
     Active Substance: ACETAMINOPHEN\CODEINE PHOSPHATE
     Route: 048
     Dates: start: 20180507, end: 20180515
  11. SIMVASTATIN. [Concomitant]
     Active Substance: SIMVASTATIN
     Route: 048

REACTIONS (1)
  - Acute kidney injury [Recovered/Resolved]

NARRATIVE: CASE EVENT DATE: 20180515
